FAERS Safety Report 19126166 (Version 4)
Quarter: 2025Q2

REPORT INFORMATION
  Report Type: Spontaneous
  Country: CA (occurrence: None)
  Receive Date: 20210413
  Receipt Date: 20250422
  Transmission Date: 20250716
  Serious: Yes (Other)
  Sender: ORION
  Company Number: CA-PFIZER INC-2021383107

PATIENT
  Age: 59 Year
  Sex: Female
  Weight: 129 kg

DRUGS (4)
  1. METHOTREXATE [Suspect]
     Active Substance: METHOTREXATE
     Indication: Product used for unknown indication
     Dates: start: 202010, end: 202102
  2. METHOTREXATE [Suspect]
     Active Substance: METHOTREXATE
     Dates: start: 202110, end: 2021
  3. JARDIANCE [Concomitant]
     Active Substance: EMPAGLIFLOZIN
  4. PREDNISONE [Concomitant]
     Active Substance: PREDNISONE

REACTIONS (6)
  - Granulomatosis with polyangiitis [Unknown]
  - Drug ineffective [Unknown]
  - Therapeutic response decreased [Unknown]
  - Abdominal pain upper [Unknown]
  - Chest pain [Unknown]
  - Illness [Unknown]

NARRATIVE: CASE EVENT DATE: 20200101
